FAERS Safety Report 9332607 (Version 1)
Quarter: 2013Q2

REPORT INFORMATION
  Report Type: Spontaneous
  Country: GB (occurrence: None)
  Receive Date: 20130603
  Receipt Date: 20130603
  Transmission Date: 20140414
  Serious: Yes (Hospitalization, Other)
  Sender: FDA-Public Use
  Company Number: GER/GER/13/0029745

PATIENT
  Age: 76 Year
  Sex: Male

DRUGS (4)
  1. SIMVASTATIN (SIMVASTATIN) [Suspect]
     Indication: CORONARY ARTERY DISEASE
     Route: 048
     Dates: end: 20130313
  2. BRILIQUE [Suspect]
     Indication: CORONARY ARTERY DISEASE
     Route: 048
     Dates: start: 201303, end: 20130313
  3. ASS 100 (ACETYLSALICYLIC ACID) [Concomitant]
  4. BISOPROLOL (BISOPROLOL FUMARATE) [Concomitant]

REACTIONS (1)
  - Rhabdomyolysis [None]
